FAERS Safety Report 20836733 (Version 1)
Quarter: 2022Q2

REPORT INFORMATION
  Report Type: Spontaneous
  Country: BE (occurrence: BE)
  Receive Date: 20220517
  Receipt Date: 20220517
  Transmission Date: 20220721
  Serious: Yes (Other)
  Sender: FDA-Public Use
  Company Number: BE-SA-2022SA173449

PATIENT
  Age: 81 Year
  Sex: Female

DRUGS (1)
  1. OXALIPLATIN [Suspect]
     Active Substance: OXALIPLATIN
     Indication: Chemotherapy
     Dosage: UNK

REACTIONS (6)
  - Demyelinating polyneuropathy [Unknown]
  - Hypoaesthesia [Unknown]
  - Asthenia [Unknown]
  - Ataxia [Unknown]
  - Urinary retention [Unknown]
  - Arrhythmia [Unknown]
